FAERS Safety Report 11450309 (Version 1)
Quarter: 2015Q3

REPORT INFORMATION
  Report Type: Spontaneous
  Country: US (occurrence: None)
  Receive Date: 20150901
  Receipt Date: 20150901
  Transmission Date: 20151125
  Serious: Yes (Hospitalization)
  Sender: FDA-Public Use
  Company Number: POI0581201500018

PATIENT
  Age: 47 Year
  Sex: Male

DRUGS (2)
  1. AZASAN [Suspect]
     Active Substance: AZATHIOPRINE
     Indication: MYASTHENIA GRAVIS
     Route: 048
     Dates: start: 2013, end: 2014
  2. PREDNISONE. [Concomitant]
     Active Substance: PREDNISONE

REACTIONS (3)
  - Hepatotoxicity [None]
  - Acute hepatic failure [None]
  - Cholelithiasis [None]

NARRATIVE: CASE EVENT DATE: 20141203
